FAERS Safety Report 16438165 (Version 7)
Quarter: 2024Q2

REPORT INFORMATION
  Report Type: Spontaneous
  Country: IT (occurrence: IT)
  Receive Date: 20190617
  Receipt Date: 20240418
  Transmission Date: 20240716
  Serious: Yes (Hospitalization, Other)
  Sender: FDA-Public Use
  Company Number: IT-CELLTRION INC.-2019IT021719

PATIENT

DRUGS (2)
  1. INFLIXIMAB [Suspect]
     Active Substance: INFLIXIMAB
     Indication: Crohn^s disease
     Dosage: DOSAGE FORM: LYOPHILIZED POWDER
     Route: 042
     Dates: start: 201712
  2. INFLIXIMAB [Suspect]
     Active Substance: INFLIXIMAB
     Dosage: DOSAGE FORM: LYOPHILIZED POWDER
     Route: 042
     Dates: start: 201802

REACTIONS (8)
  - Hypokalaemia [Recovered/Resolved]
  - Respiratory failure [Recovering/Resolving]
  - Pneumonia klebsiella [Recovering/Resolving]
  - Atrial fibrillation [Recovered/Resolved]
  - Pleural effusion [Recovering/Resolving]
  - Pneumonia staphylococcal [Recovering/Resolving]
  - Bronchopulmonary aspergillosis [Recovering/Resolving]
  - Pulmonary tuberculosis [Recovering/Resolving]

NARRATIVE: CASE EVENT DATE: 20180301
